FAERS Safety Report 4428506-X (Version None)
Quarter: 2004Q3

REPORT INFORMATION
  Report Type: 
  Country: None (occurrence: None)
  Receive Date: 20040818
  Receipt Date: 20040806
  Transmission Date: 20050211
  Serious: Yes (Death, Hospitalization)
  Sender: FDA-Public Use
  Company Number: AT-JNJFOC-20040803113

PATIENT
  Age: 32 Year
  Sex: Female

DRUGS (4)
  1. ORTHOCLONE OKT3 [Suspect]
     Indication: TRANSPLANT REJECTION
     Route: 065
  2. CORTICOSTEROIDS [Suspect]
     Indication: LUNG TRANSPLANT REJECTION
  3. MYCOPHENOLATE MOFETIL [Concomitant]
  4. CYCLOSPORINE [Concomitant]

REACTIONS (7)
  - ACUTE RESPIRATORY FAILURE [None]
  - BACTERIAL INFECTION [None]
  - HAEMODYNAMIC INSTABILITY [None]
  - HAEMORRHAGE [None]
  - HEPATIC FAILURE [None]
  - HYPOTENSION [None]
  - PULMONARY EMBOLISM [None]
